FAERS Safety Report 10379817 (Version 2)
Quarter: 2014Q4

REPORT INFORMATION
  Report Type: Spontaneous
  Country: US (occurrence: US)
  Receive Date: 20140812
  Receipt Date: 20141103
  Transmission Date: 20150528
  Serious: No
  Sender: FDA-Public Use
  Company Number: US-B.I. PHARMACEUTICALS,INC./RIDGEFIELD-2014-BI-35783BP

PATIENT
  Age: 69 Year
  Sex: Female
  Weight: 59 kg

DRUGS (7)
  1. ZOLOFT [Concomitant]
     Active Substance: SERTRALINE HYDROCHLORIDE
     Indication: INSOMNIA
     Dosage: 50 MG
     Route: 048
     Dates: start: 1995
  2. SPIRIVA [Suspect]
     Active Substance: TIOTROPIUM BROMIDE MONOHYDRATE
     Indication: BRONCHIECTASIS
     Dosage: 18 MCG
     Route: 055
     Dates: start: 20140731
  3. MOTRIN [Concomitant]
     Active Substance: IBUPROFEN
     Indication: ARTHRITIS
     Dosage: 600 MG
     Route: 048
     Dates: start: 201302
  4. TRAMODOL [Concomitant]
     Indication: ARTHRITIS
     Dosage: 50 MG
     Route: 048
     Dates: start: 201302
  5. BENADRYL [Concomitant]
     Active Substance: DIPHENHYDRAMINE HYDROCHLORIDE
     Indication: SEASONAL ALLERGY
     Dosage: 25 MG
     Route: 048
     Dates: start: 1967
  6. AMBIEN [Concomitant]
     Active Substance: ZOLPIDEM TARTRATE
     Indication: INSOMNIA
     Dosage: 10 MG
     Route: 048
     Dates: start: 2012
  7. SPIRIVA [Suspect]
     Active Substance: TIOTROPIUM BROMIDE MONOHYDRATE
     Indication: EMPHYSEMA
     Dosage: 0.2857 ANZ
     Route: 055
     Dates: start: 2006

REACTIONS (6)
  - Cough [Not Recovered/Not Resolved]
  - Off label use [Unknown]
  - Rales [Not Recovered/Not Resolved]
  - Productive cough [Not Recovered/Not Resolved]
  - Productive cough [Not Recovered/Not Resolved]
  - Drug ineffective [Not Recovered/Not Resolved]

NARRATIVE: CASE EVENT DATE: 2008
